FAERS Safety Report 9167338 (Version 2)
Quarter: 2013Q1

REPORT INFORMATION
  Report Type: Spontaneous
  Country: US (occurrence: US)
  Receive Date: 20130318
  Receipt Date: 20130321
  Transmission Date: 20140127
  Serious: No
  Sender: FDA-Public Use
  Company Number: US-009507513-1303USA007789

PATIENT
  Age: 9 None
  Sex: Female

DRUGS (2)
  1. NASONEX [Suspect]
     Indication: RHINITIS ALLERGIC
     Dosage: 50MCG, 1 STANDARD DOSE OF 17,ONE SPRAY IN EACH NOSTRIL ONCE DAILY
     Route: 045
     Dates: start: 2011
  2. LORATADINE [Concomitant]
     Indication: HYPERSENSITIVITY

REACTIONS (5)
  - Nasal congestion [Not Recovered/Not Resolved]
  - Swelling [Not Recovered/Not Resolved]
  - Sinusitis [Not Recovered/Not Resolved]
  - Drug dose omission [Unknown]
  - Product quality issue [Unknown]
